FAERS Safety Report 9629778 (Version 2)
Quarter: 2014Q1

REPORT INFORMATION
  Report Type: Report from Study
  Country: CZ (occurrence: CZ)
  Receive Date: 20131017
  Receipt Date: 20140109
  Transmission Date: 20141002
  Serious: Yes (Other)
  Sender: FDA-Public Use
  Company Number: CZ-PFIZER INC-2013295782

PATIENT
  Age: 64 Year
  Sex: Female

DRUGS (3)
  1. SUTENT [Suspect]
     Indication: RENAL CELL CARCINOMA
     Dosage: 50 MG
     Route: 048
     Dates: start: 20121216
  2. SUTENT [Suspect]
     Dosage: 25 MG, CYCLIC
     Route: 048
  3. SUTENT [Suspect]
     Dosage: 37.5 MG, DAILY, 4 WEEKS ON/2 WEEKS OFF
     Route: 048
     Dates: end: 20131210

REACTIONS (15)
  - Abasia [Recovering/Resolving]
  - Palmar-plantar erythrodysaesthesia syndrome [Recovering/Resolving]
  - Ageusia [Recovering/Resolving]
  - Weight decreased [Unknown]
  - Swelling face [Unknown]
  - Hypertension [Recovering/Resolving]
  - Decreased appetite [Recovering/Resolving]
  - Dyspepsia [Recovering/Resolving]
  - Retching [Unknown]
  - Epistaxis [Unknown]
  - Thrombocytopenia [Unknown]
  - Yellow skin [Unknown]
  - Feeling cold [Recovering/Resolving]
  - Disease progression [Unknown]
  - Renal cell carcinoma [Unknown]
